FAERS Safety Report 4747614-7 (Version None)
Quarter: 2005Q3

REPORT INFORMATION
  Report Type: 
  Country: None (occurrence: None)
  Receive Date: 20050818
  Receipt Date: 20050118
  Transmission Date: 20060218
  Serious: No
  Sender: FDA-Public Use
  Company Number: US-BRISTOL-MYERS SQUIBB COMPANY-12830113

PATIENT
  Age: 73 Year
  Sex: Female

DRUGS (7)
  1. TEQUIN [Suspect]
     Indication: BRONCHITIS
     Route: 048
     Dates: start: 20050115, end: 20050115
  2. ALLEGRA [Concomitant]
  3. MOTRIN [Concomitant]
  4. VALIUM [Concomitant]
  5. PREMARIN [Concomitant]
     Route: 061
  6. MECLIZINE [Concomitant]
  7. ROCEPHIN [Concomitant]
     Route: 030
     Dates: start: 20050115

REACTIONS (6)
  - FEELING ABNORMAL [None]
  - HYPOAESTHESIA ORAL [None]
  - INSOMNIA [None]
  - PALPITATIONS [None]
  - RESTLESS LEGS SYNDROME [None]
  - SWELLING FACE [None]
